FAERS Safety Report 9913305 (Version 1)
Quarter: 2014Q1

REPORT INFORMATION
  Report Type: Spontaneous
  Country: US (occurrence: None)
  Receive Date: 20140214
  Receipt Date: 20140214
  Transmission Date: 20141002
  Serious: Yes (Death, Other)
  Sender: FDA-Public Use
  Company Number: AUR-APL-2014-01255

PATIENT
  Age: 47 Year
  Sex: Male

DRUGS (2)
  1. METFORMIN [Suspect]
     Route: 048
  2. PAROXETINE [Suspect]

REACTIONS (3)
  - Respiratory arrest [None]
  - Cardiac arrest [None]
  - Completed suicide [None]
